FAERS Safety Report 6157212-9 (Version None)
Quarter: 2009Q2

REPORT INFORMATION
  Report Type: 
  Country: None (occurrence: None)
  Receive Date: 20090413
  Receipt Date: 20090403
  Transmission Date: 20091009
  Serious: Yes (Death, Life-Threatening, Hospitalization)
  Sender: FDA-Public Use
  Company Number: 2009-01271

PATIENT
  Age: 56 Year
  Sex: Male
  Weight: 65 kg

DRUGS (2)
  1. VELCADE [Suspect]
     Indication: MULTIPLE MYELOMA
     Dosage: 2.2 MG, INTRAVENOUS
     Route: 042
     Dates: start: 20090303, end: 20090327
  2. DEXAMETHASONE TAB [Suspect]
     Indication: MULTIPLE MYELOMA
     Dosage: 20 MG, ORAL
     Route: 048
     Dates: start: 20090303, end: 20090327

REACTIONS (13)
  - COLITIS [None]
  - DISSEMINATED INTRAVASCULAR COAGULATION [None]
  - DIVERTICULITIS [None]
  - ILEUS PARALYTIC [None]
  - IMMUNOSUPPRESSION [None]
  - MULTI-ORGAN FAILURE [None]
  - NO THERAPEUTIC RESPONSE [None]
  - OESOPHAGITIS [None]
  - PAIN [None]
  - PANCYTOPENIA [None]
  - SEPSIS [None]
  - SINUS TACHYCARDIA [None]
  - TACHYPNOEA [None]
